FAERS Safety Report 9877133 (Version 1)
Quarter: 2014Q1

REPORT INFORMATION
  Report Type: Spontaneous
  Country: GB (occurrence: None)
  Receive Date: 20140204
  Receipt Date: 20140204
  Transmission Date: 20141002
  Serious: Yes (Other)
  Sender: FDA-Public Use
  Company Number: AUR-APL-2014-00718

PATIENT
  Age: 100 Year
  Sex: Female

DRUGS (1)
  1. PIPERACILLIN+TAZOBACTAM [Suspect]
     Indication: PRODUCT USED FOR UNKNOWN INDICATION
     Dates: start: 20140113, end: 20140113

REACTIONS (1)
  - Rash erythematous [None]
